FAERS Safety Report 6781661-9 (Version None)
Quarter: 2010Q2

REPORT INFORMATION
  Report Type: 
  Country: None (occurrence: None)
  Receive Date: 20100621
  Receipt Date: 20100614
  Transmission Date: 20101027
  Serious: Yes (Hospitalization)
  Sender: FDA-Public Use
  Company Number: IT-ASTRAZENECA-2010SE27802

PATIENT
  Age: 26179 Day
  Sex: Female

DRUGS (4)
  1. TENORETIC 100 [Suspect]
     Indication: HYPERTENSION
     Dosage: 100+25 MG ONCE DAILY
     Route: 048
     Dates: start: 20090101, end: 20100316
  2. ACID ACETYLSALICYLIC [Concomitant]
  3. FULCROSUPRA [Concomitant]
  4. NORVASC [Concomitant]

REACTIONS (2)
  - ATRIOVENTRICULAR BLOCK [None]
  - HYPOKALAEMIA [None]
